FAERS Safety Report 10248744 (Version 1)
Quarter: 2014Q2

REPORT INFORMATION
  Report Type: Spontaneous
  Country: US (occurrence: None)
  Receive Date: 20140618
  Receipt Date: 20140618
  Transmission Date: 20141212
  Serious: Yes (Death)
  Sender: FDA-Public Use
  Company Number: None

PATIENT
  Age: 79 Year
  Sex: Male
  Weight: 75 kg

DRUGS (16)
  1. ERBITUX [Suspect]
     Indication: HEAD AND NECK CANCER
     Route: 042
     Dates: start: 20140616, end: 20140616
  2. ACETAMINOPHEN [Concomitant]
  3. ATENOLOL [Concomitant]
  4. BETHANECHOL [Concomitant]
  5. DABIGATRIN [Concomitant]
  6. DILTIAZEM [Concomitant]
  7. DOCUSATE SODIUM [Concomitant]
  8. FINASTERIDE [Concomitant]
  9. GEMFIBROZIL [Concomitant]
  10. OSMOLITE [Concomitant]
  11. VISCOUS LIDOCAINE [Concomitant]
  12. LORAZEPAM [Concomitant]
  13. MAGNESIUM OXIDE [Concomitant]
  14. MIRTAZAPINE [Concomitant]
  15. OMEPRAZOLE [Concomitant]
  16. TRAMADOL [Concomitant]

REACTIONS (1)
  - Death [None]
